FAERS Safety Report 6783619-2 (Version None)
Quarter: 2010Q2

REPORT INFORMATION
  Report Type: 
  Country: None (occurrence: None)
  Receive Date: 20100520
  Receipt Date: 20090805
  Transmission Date: 20101027
  Serious: Yes (Other)
  Sender: FDA-Public Use
  Company Number: 2009251327

PATIENT
  Age: 59 Year
  Sex: Female
  Weight: 51.7 kg

DRUGS (9)
  1. PROVERA [Suspect]
     Indication: HORMONE REPLACEMENT THERAPY
     Dosage: 0.5 MG, ORAL
     Route: 048
     Dates: start: 19861201, end: 19970701
  2. PREMARIN [Suspect]
     Indication: HORMONE REPLACEMENT THERAPY
     Dosage: 0.625 MG, ORAL
     Route: 048
     Dates: start: 19861201, end: 19970701
  3. PREMPRO [Suspect]
     Indication: HORMONE REPLACEMENT THERAPY
     Dosage: 0.625/0.5MG, ORAL
     Route: 048
     Dates: start: 19960801, end: 19970101
  4. ESTRATEST H.S. [Suspect]
     Indication: HORMONE REPLACEMENT THERAPY
     Dates: start: 19960601, end: 19960701
  5. CORZIDE ^MONARCH^ (BENDROFLUMETHIAZIDE, NADOLOL) [Concomitant]
  6. SYNTHROID [Concomitant]
  7. PREVACID [Concomitant]
  8. WARFARIN SODIUM [Concomitant]
  9. VICODIN [Concomitant]

REACTIONS (1)
  - BREAST CANCER FEMALE [None]
